FAERS Safety Report 24880534 (Version 4)
Quarter: 2025Q2

REPORT INFORMATION
  Report Type: Report from Study
  Country: JP (occurrence: JP)
  Receive Date: 20250123
  Receipt Date: 20250627
  Transmission Date: 20250716
  Serious: Yes (Death, Other)
  Sender: SHIONOGI
  Company Number: JP-shionogi-202500000779

PATIENT
  Age: 60 Year
  Sex: Male
  Weight: 92 kg

DRUGS (18)
  1. CEFIDEROCOL [Suspect]
     Active Substance: CEFIDEROCOL
     Indication: Abdominal infection
     Route: 041
     Dates: start: 20241025, end: 20241110
  2. CEFTOLOZANE SULFATE\TAZOBACTAM SODIUM [Concomitant]
     Active Substance: CEFTOLOZANE SULFATE\TAZOBACTAM SODIUM
     Indication: Abdominal infection
     Route: 065
     Dates: start: 20241023, end: 20241025
  3. CIPROFLOXACIN [Concomitant]
     Active Substance: CIPROFLOXACIN
     Indication: Abdominal infection
     Route: 065
     Dates: start: 20241023, end: 20241025
  4. METRONIDAZOLE [Concomitant]
     Active Substance: METRONIDAZOLE
     Indication: Abdominal infection
     Route: 065
     Dates: start: 20241023, end: 20241110
  5. TEICOPLANIN [Concomitant]
     Active Substance: TEICOPLANIN
     Indication: Abdominal infection
     Route: 065
     Dates: start: 20241019, end: 20241106
  6. VERAPAMIL HYDROCHLORIDE [Concomitant]
     Active Substance: VERAPAMIL HYDROCHLORIDE
     Indication: Product used for unknown indication
     Route: 065
     Dates: end: 20241107
  7. NOREPINEPHRINE BITARTRATE [Concomitant]
     Active Substance: NOREPINEPHRINE BITARTRATE
     Indication: Product used for unknown indication
     Route: 065
     Dates: end: 20241110
  8. PITRESSIN [Concomitant]
     Active Substance: VASOPRESSIN
     Indication: Product used for unknown indication
     Route: 065
     Dates: end: 20241110
  9. LANDIOLOL HYDROCHLORIDE [Concomitant]
     Active Substance: LANDIOLOL HYDROCHLORIDE
     Indication: Product used for unknown indication
     Route: 065
     Dates: end: 20241110
  10. SOLU-MEDROL [Concomitant]
     Active Substance: METHYLPREDNISOLONE SODIUM SUCCINATE
     Indication: Product used for unknown indication
     Route: 065
     Dates: end: 20241110
  11. OMEPRAZOLE [Concomitant]
     Active Substance: OMEPRAZOLE
     Indication: Product used for unknown indication
     Route: 065
     Dates: end: 20241110
  12. DEXMEDETOMIDINE [Concomitant]
     Active Substance: DEXMEDETOMIDINE
     Indication: Product used for unknown indication
     Route: 065
     Dates: end: 20241110
  13. NAFAMOSTAT [Concomitant]
     Active Substance: NAFAMOSTAT
     Indication: Product used for unknown indication
     Route: 065
     Dates: end: 20241110
  14. DIPRIVAN [Concomitant]
     Active Substance: PROPOFOL
     Indication: Product used for unknown indication
     Route: 065
     Dates: end: 20241110
  15. AMBISOME [Concomitant]
     Active Substance: AMPHOTERICIN B
     Indication: Product used for unknown indication
     Route: 065
     Dates: end: 20241110
  16. GANCICLOVIR [Concomitant]
     Active Substance: GANCICLOVIR
     Indication: Product used for unknown indication
     Route: 065
     Dates: end: 20241110
  17. VANCOMYCIN [Concomitant]
     Active Substance: VANCOMYCIN
     Indication: Abdominal infection
     Route: 065
     Dates: start: 20241106, end: 20241110
  18. PROGRAF [Concomitant]
     Active Substance: TACROLIMUS
     Indication: Liver transplant
     Route: 048
     Dates: end: 20241110

REACTIONS (4)
  - Complications of transplanted liver [Fatal]
  - Shock haemorrhagic [Fatal]
  - Ammonia increased [Not Recovered/Not Resolved]
  - Electrocardiogram ST-T segment depression [Unknown]

NARRATIVE: CASE EVENT DATE: 20241104
